FAERS Safety Report 9264003 (Version 1)
Quarter: 2013Q1

REPORT INFORMATION
  Report Type: Spontaneous
  Country: US (occurrence: None)
  Receive Date: 20121212
  Receipt Date: 20121212
  Transmission Date: 20140127
  Serious: No
  Sender: FDA-Public Use
  Company Number: 1210USA008241

PATIENT
  Age: 52 Year
  Sex: Female

DRUGS (4)
  1. PEGINTRON [Suspect]
     Indication: HEPATITIS C
     Dates: start: 20111114, end: 20111214
  2. RIBAVIRIN [Suspect]
     Indication: HEPATITIS C
     Dates: start: 20111114, end: 20120323
  3. VICTRELIS [Suspect]
     Indication: HEPATITIS C
     Dates: start: 20111211, end: 20120323
  4. PEGASYS [Suspect]
     Indication: HEPATITIS C
     Dates: start: 20111214, end: 20120323

REACTIONS (5)
  - Hepatitis C [None]
  - Urinary tract disorder [None]
  - Mood swings [None]
  - Depression [None]
  - Decreased appetite [None]
